FAERS Safety Report 7247083-1 (Version None)
Quarter: 2011Q1

REPORT INFORMATION
  Report Type: 
  Country: None (occurrence: None)
  Receive Date: 20110127
  Receipt Date: 20091210
  Transmission Date: 20110831
  Serious: No
  Sender: FDA-Public Use
  Company Number: US-BAUSCH-2009BL006516

PATIENT
  Age: 84 Year
  Sex: Male

DRUGS (5)
  1. ALAWAY [Suspect]
     Indication: EYE ALLERGY
     Route: 047
     Dates: start: 20091208, end: 20091208
  2. MULTI-VITAMINS [Concomitant]
     Indication: VITAMIN SUPPLEMENTATION
     Route: 048
  3. SYSTANE [Concomitant]
     Indication: DRY EYE
     Route: 047
  4. PATANOL [Concomitant]
     Indication: EYE ALLERGY
     Route: 047
  5. VISINE EYE DROPS [Concomitant]
     Indication: EYE ALLERGY
     Route: 047

REACTIONS (1)
  - EYE IRRITATION [None]
